FAERS Safety Report 9744923 (Version 1)
Quarter: 2013Q4

REPORT INFORMATION
  Report Type: Spontaneous
  Country: US (occurrence: US)
  Receive Date: 20131211
  Receipt Date: 20131211
  Transmission Date: 20140711
  Serious: Yes (Hospitalization)
  Sender: FDA-Public Use
  Company Number: US-BIOGENIDEC-2013BI116766

PATIENT
  Age: 56 Year
  Sex: Female

DRUGS (4)
  1. TECFIDERA [Suspect]
     Indication: MULTIPLE SCLEROSIS
     Route: 048
     Dates: start: 20131025
  2. HYDROCODONE-ACETAMINOPHEN [Concomitant]
  3. TRAZODONE HCL [Concomitant]
  4. REMERON SOLTAB [Concomitant]

REACTIONS (1)
  - Kidney infection [Unknown]
